FAERS Safety Report 9700760 (Version 2)
Quarter: 2013Q4

REPORT INFORMATION
  Report Type: Spontaneous
  Country: US (occurrence: US)
  Receive Date: 20131121
  Receipt Date: 20131227
  Transmission Date: 20140711
  Serious: Yes (Death)
  Sender: FDA-Public Use
  Company Number: US-PFIZER INC-2013330679

PATIENT
  Age: 64 Year
  Sex: Male
  Weight: 77.1 kg

DRUGS (4)
  1. SUTENT [Suspect]
     Indication: RENAL CANCER
     Dosage: 50 MG, CYCLIC (28 DAYS ON / 14 DAYS OFF)
     Route: 048
     Dates: start: 2012, end: 201303
  2. AFINITOR [Suspect]
     Indication: RENAL CANCER
     Dosage: 10 MG, 1X/DAY
     Dates: start: 201303, end: 2013
  3. AFINITOR [Suspect]
     Dosage: 5 MG, 1X/DAY
     Dates: start: 2013, end: 201309
  4. GLIPIZIDE [Concomitant]
     Indication: DIABETES MELLITUS
     Dosage: UNK

REACTIONS (3)
  - Disease progression [Fatal]
  - Renal cancer [Fatal]
  - Back pain [Unknown]
